FAERS Safety Report 15423270 (Version 3)
Quarter: 2018Q4

REPORT INFORMATION
  Report Type: Report from Study
  Country: US (occurrence: US)
  Receive Date: 20180925
  Receipt Date: 20181009
  Transmission Date: 20190204
  Serious: Yes (Death)
  Sender: FDA-Public Use
  Company Number: US-ROCHE-2184615

PATIENT
  Age: 58 Year
  Sex: Female
  Weight: 85.9 kg

DRUGS (26)
  1. ROPINIROLE. [Concomitant]
     Active Substance: ROPINIROLE
  2. OXYCODONE [Concomitant]
     Active Substance: OXYCODONE
  3. LEUCOVORIN CALCIUM. [Suspect]
     Active Substance: LEUCOVORIN CALCIUM
     Indication: COLORECTAL CANCER METASTATIC
     Dosage: OVER 2 HOURS ON DAY 1 (CYCLE 1)?OVER 2 HOURS ON DAY 1 (CYCLE 2)?ON 29/AUG/2018, SHE RECEIVED LAST DO
     Route: 042
     Dates: start: 20180124
  4. DIPHENHYDRAMINE. [Concomitant]
     Active Substance: DIPHENHYDRAMINE
  5. ACETAMINOPHEN. [Concomitant]
     Active Substance: ACETAMINOPHEN
  6. FUROSEMIDE. [Concomitant]
     Active Substance: FUROSEMIDE
  7. LOSARTAN. [Concomitant]
     Active Substance: LOSARTAN
  8. OXALIPLATIN. [Suspect]
     Active Substance: OXALIPLATIN
     Indication: COLORECTAL CANCER METASTATIC
     Dosage: OVER 2 HOURS ON DAY 1 (CYCLE 1)?OVER 2 HOURS ON DAY 1 (CYCLE 2)?ON 30/MAY/2018, LAST DOSE OF OXALIPL
     Route: 042
     Dates: start: 20180124
  9. TIZANIDINE. [Concomitant]
     Active Substance: TIZANIDINE
  10. MAGNESIUM OXIDE. [Concomitant]
     Active Substance: MAGNESIUM OXIDE
  11. HYDROCORTISONE. [Concomitant]
     Active Substance: HYDROCORTISONE
  12. FLUOXETINE [Concomitant]
     Active Substance: FLUOXETINE HYDROCHLORIDE
  13. ATEZOLIZUMAB. [Suspect]
     Active Substance: ATEZOLIZUMAB
     Indication: COLORECTAL CANCER METASTATIC
     Dosage: 60 MINUTES ON DAY 1 (CYCLE 1), 30 MINUTES ON DAY 1 (CYCLE 2)?ON 29/AUG/2018, RECEIVED LAST DOSE OF A
     Route: 042
     Dates: start: 20180124
  14. DIPHENOXYLATE/ATROPINE [Concomitant]
     Active Substance: ATROPINE\DIPHENOXYLATE
  15. DICYCLOMINE [Concomitant]
     Active Substance: DICYCLOMINE HYDROCHLORIDE
  16. CLONAZEPAM. [Concomitant]
     Active Substance: CLONAZEPAM
     Route: 065
  17. BEVACIZUMAB. [Suspect]
     Active Substance: BEVACIZUMAB
     Indication: COLORECTAL CANCER METASTATIC
     Dosage: OVER 90 MINUTES ON DAY 1 (CYCLE 1)?OVER 60 MINUTES ON DAY 1 (CYCLE 2)?ON 29/AUG/2018, RECEIVED LAST
     Route: 042
     Dates: start: 20180124
  18. 5-FLUOROURACIL [Suspect]
     Active Substance: FLUOROURACIL
     Indication: COLORECTAL CANCER METASTATIC
     Dosage: OVER 2-4 MINUTES ON DAY 1, FOLLOWED BY 2400MG/M2 CONTINUOUS INFUSION OVER 46-48 HOURS STARTING DAY 1
     Route: 042
     Dates: start: 20180124
  19. ASPIRIN. [Concomitant]
     Active Substance: ASPIRIN
  20. ATORVASTATIN [Concomitant]
     Active Substance: ATORVASTATIN
  21. LAMOTRIGINE. [Concomitant]
     Active Substance: LAMOTRIGINE
  22. MORPHINE [Concomitant]
     Active Substance: MORPHINE
  23. METFORMIN [Concomitant]
     Active Substance: METFORMIN HYDROCHLORIDE
     Route: 065
  24. DRONABINOL. [Concomitant]
     Active Substance: DRONABINOL
  25. PROMETHAZINE W/ CODEINE [Concomitant]
  26. INSULIN [Concomitant]
     Active Substance: INSULIN NOS

REACTIONS (1)
  - Death [Fatal]

NARRATIVE: CASE EVENT DATE: 20180906
